FAERS Safety Report 11295923 (Version 1)
Quarter: 2015Q3

REPORT INFORMATION
  Report Type: Spontaneous
  Country: US (occurrence: US)
  Receive Date: 20150722
  Receipt Date: 20150722
  Transmission Date: 20151125
  Serious: No
  Sender: FDA-Public Use
  Company Number: US-ELI_LILLY_AND_COMPANY-US200910001130

PATIENT
  Age: 75 Year
  Sex: Female

DRUGS (1)
  1. EVISTA [Suspect]
     Active Substance: RALOXIFENE HYDROCHLORIDE
     Dosage: UNK, UNKNOWN
     Route: 065
     Dates: start: 2004

REACTIONS (4)
  - Toothache [Unknown]
  - Tooth infection [Unknown]
  - Ear disorder [Unknown]
  - Middle ear effusion [Unknown]

NARRATIVE: CASE EVENT DATE: 20090930
